FAERS Safety Report 10204037 (Version 1)
Quarter: 2014Q2

REPORT INFORMATION
  Report Type: Spontaneous
  Country: GB (occurrence: None)
  Receive Date: 20140523
  Receipt Date: 20140523
  Transmission Date: 20141212
  Serious: Yes (Disabling, Other)
  Sender: FDA-Public Use
  Company Number: AUR-APL-2014-05984

PATIENT
  Age: 69 Year
  Sex: Female
  Weight: 75 kg

DRUGS (6)
  1. BISOPROLOL (BISOPROLOL) [Suspect]
     Indication: PRODUCT USED FOR UNKNOWN INDICATION
     Dates: start: 20140326
  2. CANDESARTAN (CANDESARTAN) [Concomitant]
  3. CELECOXIB (CELECOXIB) [Concomitant]
  4. CLOBETASONE BUTYRATE (CLOBETASONE BUTYRATE) [Concomitant]
  5. DOXAZOSIN (DOXAZOSIN) [Concomitant]
  6. INDAPAMIDE (INDAPAMIDE) [Concomitant]

REACTIONS (4)
  - Depression [None]
  - Depressed mood [None]
  - Crying [None]
  - Fatigue [None]
